FAERS Safety Report 7646819-5 (Version None)
Quarter: 2011Q3

REPORT INFORMATION
  Report Type: 
  Country: None (occurrence: None)
  Receive Date: 20110725
  Receipt Date: 20110714
  Transmission Date: 20111222
  Serious: Yes (Life-Threatening, Hospitalization, Other)
  Sender: FDA-Public Use
  Company Number: 1000022202

PATIENT
  Age: 41 Year
  Sex: Male
  Weight: 108 kg

DRUGS (8)
  1. MELATONIN(MELATONIN)(MELATONIN) [Concomitant]
  2. CALCIUM WITH VITAMIN D(CALCIUM, VITAMIN D)(CALCIUM, VITAMIN D) [Concomitant]
  3. SAVELLA [Suspect]
     Indication: NEURALGIA
     Dosage: 100 MG (50 MG, 2 IN 1 D)
     Dates: start: 20101105, end: 20101125
  4. SAVELLA [Suspect]
     Indication: BACK DISORDER
     Dosage: 100 MG (50 MG, 2 IN 1 D)
     Dates: start: 20101105, end: 20101125
  5. FLEXERIL (CYCLOBENZAPRINE) (CYCLOBENZAPRINE) [Concomitant]
  6. DELATESTRYL (TESTO- DELATESTRYL (TESTOSTERONE ENANTATE) (TESTOSTERONE [Concomitant]
  7. SKELAXIN (METAXALONE ) (METAXALONE) [Concomitant]
  8. EXCEDRINE (ACETYLSALICYLIC ACID, CAFFIENE) (ACETYLSALICYLIC ACID, CAFF [Concomitant]

REACTIONS (13)
  - DIZZINESS [None]
  - CHEST PAIN [None]
  - LOSS OF CONSCIOUSNESS [None]
  - FALL [None]
  - BLOOD SODIUM DECREASED [None]
  - DYSPNOEA [None]
  - DYSSTASIA [None]
  - TACHYARRHYTHMIA [None]
  - ELECTROCARDIOGRAM ABNORMAL [None]
  - FEELING ABNORMAL [None]
  - CARDIOMEGALY [None]
  - PALPITATIONS [None]
  - BLOOD POTASSIUM DECREASED [None]
